FAERS Safety Report 13047635 (Version 2)
Quarter: 2017Q1

REPORT INFORMATION
  Report Type: Spontaneous
  Country: US (occurrence: US)
  Receive Date: 20161220
  Receipt Date: 20170106
  Transmission Date: 20170428
  Serious: Yes (Other)
  Sender: FDA-Public Use
  Company Number: US-SAOL THERAPEUTICS-2016SAO01233

PATIENT
  Age: 48 Year
  Sex: Male

DRUGS (2)
  1. LIORESAL [Suspect]
     Active Substance: BACLOFEN
     Indication: MYELOPATHY
  2. LIORESAL [Suspect]
     Active Substance: BACLOFEN
     Indication: MUSCLE SPASTICITY
     Dosage: 800 ?G, \DAY
     Route: 037

REACTIONS (10)
  - Complication associated with device [Recovered/Resolved]
  - Chills [Unknown]
  - Muscle spasms [Unknown]
  - Device malfunction [Recovered/Resolved]
  - Tremor [Unknown]
  - Fall [Unknown]
  - Therapeutic response changed [Unknown]
  - Gait disturbance [Unknown]
  - Micturition urgency [Unknown]
  - Anal incontinence [Unknown]

NARRATIVE: CASE EVENT DATE: 201408
